FAERS Safety Report 18592350 (Version 16)
Quarter: 2023Q4

REPORT INFORMATION
  Report Type: Report from Study
  Country: AT (occurrence: AT)
  Receive Date: 20201209
  Receipt Date: 20231019
  Transmission Date: 20240110
  Serious: Yes (Hospitalization, Other)
  Sender: FDA-Public Use
  Company Number: AT-AMGEN-AUTSP2020194988

PATIENT
  Age: 67 Year
  Sex: Female
  Weight: 89 kg

DRUGS (58)
  1. DENOSUMAB [Suspect]
     Active Substance: DENOSUMAB
     Indication: HER2 positive breast cancer
     Dosage: 120 MILLIGRAM, QMO, MOST RECENT DOSE PRIOR TO THE EVENT: 02MAR2021
     Route: 058
     Dates: start: 20170505, end: 20180329
  2. DENOSUMAB [Suspect]
     Active Substance: DENOSUMAB
     Dosage: 120 MILLIGRAM, QMO
     Route: 058
     Dates: start: 20181017, end: 20190826
  3. DENOSUMAB [Suspect]
     Active Substance: DENOSUMAB
     Dosage: 120 MILLIGRAM, QMO
     Route: 058
     Dates: start: 20200310, end: 20201127
  4. DENOSUMAB [Suspect]
     Active Substance: DENOSUMAB
     Dosage: 120 MILLIGRAM, QMO
     Route: 058
     Dates: start: 20210716
  5. ONTRUZANT [Suspect]
     Active Substance: TRASTUZUMAB-DTTB
     Indication: HER2 positive breast cancer
     Dosage: 420 MILLIGRAM, Q3WK
     Route: 042
     Dates: start: 20181128, end: 20181128
  6. ONTRUZANT [Suspect]
     Active Substance: TRASTUZUMAB-DTTB
     Dosage: 408 MILLIGRAM, Q3WK
     Route: 042
     Dates: start: 20181219, end: 20200424
  7. ONTRUZANT [Suspect]
     Active Substance: TRASTUZUMAB-DTTB
     Dosage: 408 MILLIGRAM, Q3WK
     Route: 042
     Dates: start: 20210424
  8. ONTRUZANT [Suspect]
     Active Substance: TRASTUZUMAB-DTTB
     Dosage: 450 MILLIGRAM, Q3WK
     Route: 042
     Dates: start: 20200515, end: 20210402
  9. ONTRUZANT [Suspect]
     Active Substance: TRASTUZUMAB-DTTB
     Dosage: 438 MILLIGRAM, Q3WK
     Route: 042
     Dates: start: 20181017, end: 20181017
  10. HERCEPTIN [Suspect]
     Active Substance: TRASTUZUMAB
     Indication: HER2 positive breast cancer
     Dosage: UNK UNK, Q3WK
     Route: 042
     Dates: start: 20181017, end: 20181017
  11. HERCEPTIN [Suspect]
     Active Substance: TRASTUZUMAB
     Dosage: 408 MILLIGRAM, Q3WK, ON 24/APR/2020, MOST RECENT DOSE
     Route: 042
     Dates: start: 20210424
  12. HERCEPTIN [Suspect]
     Active Substance: TRASTUZUMAB
     Dosage: UNK, Q3WK
     Route: 042
     Dates: start: 20200515
  13. HERCEPTIN [Suspect]
     Active Substance: TRASTUZUMAB
     Dosage: 438 MILLIGRAM, Q3WK
     Route: 042
     Dates: start: 20180926, end: 20180926
  14. HERCEPTIN [Suspect]
     Active Substance: TRASTUZUMAB
     Dosage: 480 MILLIGRAM, Q3WK
     Route: 042
     Dates: start: 20170828, end: 20171030
  15. HERCEPTIN [Suspect]
     Active Substance: TRASTUZUMAB
     Dosage: 462 MILLIGRAM, Q3WK
     Route: 042
     Dates: start: 20180608, end: 20180608
  16. HERCEPTIN [Suspect]
     Active Substance: TRASTUZUMAB
     Dosage: 474 MILLIGRAM, Q3WK
     Route: 042
     Dates: start: 20171213, end: 20180514
  17. HERCEPTIN [Suspect]
     Active Substance: TRASTUZUMAB
     Dosage: 534 MILLIGRAM, Q3WK
     Route: 042
     Dates: start: 20170414, end: 20170619
  18. HERCEPTIN [Suspect]
     Active Substance: TRASTUZUMAB
     Dosage: 450 MILLIGRAM, Q3WK
     Route: 042
     Dates: start: 20180723, end: 20180904
  19. HERCEPTIN [Suspect]
     Active Substance: TRASTUZUMAB
     Dosage: 534 MILLIGRAM, Q3WK
     Route: 042
     Dates: start: 20170714, end: 20170804
  20. HERCEPTIN [Suspect]
     Active Substance: TRASTUZUMAB
     Dosage: UNK UNK, Q3WK
     Route: 042
     Dates: start: 20181219
  21. HERCEPTIN [Suspect]
     Active Substance: TRASTUZUMAB
     Dosage: 712 MILLIGRAM, Q3WK
     Route: 042
     Dates: start: 20170324, end: 20170324
  22. HERCEPTIN [Suspect]
     Active Substance: TRASTUZUMAB
     Dosage: UNK UNK, Q3WK
     Route: 042
     Dates: start: 20181128, end: 20181128
  23. HERCEPTIN [Suspect]
     Active Substance: TRASTUZUMAB
     Dosage: 420 MILLIGRAM, Q3WK
     Route: 042
     Dates: start: 20181107, end: 20181107
  24. TAXOTERE [Suspect]
     Active Substance: DOCETAXEL
     Indication: HER2 positive breast cancer
     Dosage: 137 MILLIGRAM, Q3WK, DATE OF MOST RECENT DOSE: 23JUL2018
     Route: 042
     Dates: start: 20180608, end: 20180608
  25. TAXOTERE [Suspect]
     Active Substance: DOCETAXEL
     Dosage: 134.32 MILLIGRAM, Q3WK
     Route: 042
     Dates: start: 20180723, end: 20180904
  26. TAXOTERE [Suspect]
     Active Substance: DOCETAXEL
     Dosage: 132.78 MILLIGRAM, Q3WK
     Route: 042
     Dates: start: 20180926, end: 20180926
  27. TAXOTERE [Suspect]
     Active Substance: DOCETAXEL
     Dosage: 106.22 MILLIGRAM, Q3WK
     Route: 042
     Dates: start: 20181017, end: 20181017
  28. ARIMIDEX [Suspect]
     Active Substance: ANASTROZOLE
     Indication: HER2 positive breast cancer
     Dosage: 1 MILLIGRAM, QD/ MOST RECENT DOSE PRIOR TO AE 14/MAY/2018/ 1 MG, 1X/DAY,
     Route: 048
     Dates: start: 20170324, end: 20180514
  29. PERJETA [Suspect]
     Active Substance: PERTUZUMAB
     Indication: HER2 positive breast cancer
     Dosage: 840 MG, EVERY 3 WEEKS, MOST RECENT DOSE PRIOR TO THE EVENT: 14/JUL/2017, 13/DEC/2017, 23/JUL/2018
     Route: 042
     Dates: start: 20170324, end: 20170324
  30. PERJETA [Suspect]
     Active Substance: PERTUZUMAB
     Dosage: 420 MILLIGRAM, QWK
     Route: 042
     Dates: start: 20170414, end: 20170619
  31. PERJETA [Suspect]
     Active Substance: PERTUZUMAB
     Dosage: 420 MILLIGRAM, QWK
     Route: 042
     Dates: start: 20170714, end: 20171030
  32. PERJETA [Suspect]
     Active Substance: PERTUZUMAB
     Dosage: 420 MILLIGRAM, Q3WK
     Route: 042
     Dates: start: 20171213, end: 20180608
  33. PERJETA [Suspect]
     Active Substance: PERTUZUMAB
     Dosage: 420 MILLIGRAM, Q3WK
     Route: 042
     Dates: start: 20180723
  34. FASLODEX [Suspect]
     Active Substance: FULVESTRANT
     Indication: HER2 positive breast cancer
     Dosage: 500 MILLIGRAM, Q2WK, 500 MG, (REQ:2 WK;MOST RECENT DOSE PRIOR TO THE EVENT: 26DEC2018 500 MG EVERY 2
     Route: 030
     Dates: start: 20181128, end: 20181226
  35. FASLODEX [Suspect]
     Active Substance: FULVESTRANT
     Dosage: 500 MILLIGRAM, Q2WK
     Route: 030
     Dates: start: 20181226
  36. PHESGO [Suspect]
     Active Substance: HYALURONIDASE-ZZXF\PERTUZUMAB\TRASTUZUMAB
     Indication: HER2 positive breast cancer
     Dosage: 15 MILLILITER
     Route: 058
     Dates: start: 20210514, end: 20210514
  37. PHESGO [Suspect]
     Active Substance: HYALURONIDASE-ZZXF\PERTUZUMAB\TRASTUZUMAB
     Dosage: 10 MILLILITER, Q3WK
     Route: 058
     Dates: start: 20220218, end: 20220701
  38. PHESGO [Suspect]
     Active Substance: HYALURONIDASE-ZZXF\PERTUZUMAB\TRASTUZUMAB
     Dosage: 10 MILLILITER, Q3WK
     Route: 058
     Dates: start: 20210604, end: 20220128
  39. DEXABENE [Concomitant]
     Dosage: UNK
     Dates: start: 20181107
  40. PANTOPRAZOLE SODIUM [Concomitant]
     Active Substance: PANTOPRAZOLE SODIUM
     Dosage: UNK
  41. DIMETHINDENE [Concomitant]
     Active Substance: DIMETHINDENE
     Dosage: UNK
     Dates: start: 20170414
  42. Lannapril plus [Concomitant]
     Dosage: UNK
     Dates: start: 20210129
  43. METHYLPREDNISOLONE [Concomitant]
     Active Substance: METHYLPREDNISOLONE
     Dosage: UNK
     Dates: start: 20191210
  44. DEXAMETHASONE [Concomitant]
     Active Substance: DEXAMETHASONE
     Dosage: UNK
     Route: 065
     Dates: start: 20180723, end: 20181017
  45. DEXAMETHASONE [Concomitant]
     Active Substance: DEXAMETHASONE
     Dosage: UNK
     Dates: start: 20181017
  46. FERINJECT [Concomitant]
     Active Substance: FERRIC CARBOXYMALTOSE
     Indication: Iron deficiency
     Dosage: UNK
     Dates: start: 20220218, end: 20220218
  47. RANITIDINE HYDROCHLORIDE [Concomitant]
     Active Substance: RANITIDINE HYDROCHLORIDE
     Dosage: UNK
     Dates: start: 20170414, end: 20191119
  48. KYTRIL [Concomitant]
     Active Substance: GRANISETRON HYDROCHLORIDE
     Dosage: UNK
     Dates: start: 20180608
  49. ASPIRIN [Concomitant]
     Active Substance: ASPIRIN
     Indication: Hypertension
     Dosage: UNK
     Route: 065
     Dates: start: 20171120, end: 20190615
  50. HYDROCHLOROTHIAZIDE\RAMIPRIL [Concomitant]
     Active Substance: HYDROCHLOROTHIAZIDE\RAMIPRIL
     Dosage: UNK
     Route: 065
     Dates: start: 20210129
  51. VIBRAMYCIN [Concomitant]
     Active Substance: DOXYCYCLINE
     Indication: Sinusitis
     Dosage: UNK
     Dates: start: 20180417, end: 20180615
  52. CALCIUM CARBONATE\CHOLECALCIFEROL [Concomitant]
     Active Substance: CALCIUM CARBONATE\CHOLECALCIFEROL
     Dosage: UNK
     Dates: start: 20170515, end: 20190615
  53. CORTISONE ACETATE [Concomitant]
     Active Substance: CORTISONE ACETATE
     Dosage: UNK
     Dates: start: 20180608
  54. CLINDAMYCIN [Concomitant]
     Active Substance: CLINDAMYCIN
     Dosage: UNK
  55. RAMIPRIL [Concomitant]
     Active Substance: RAMIPRIL
     Dosage: UNK
  56. DEXAMETHASONE [Concomitant]
     Active Substance: DEXAMETHASONE
     Dosage: UNK
  57. DEXIBUPROFEN [Concomitant]
     Active Substance: DEXIBUPROFEN
     Dosage: UNK
  58. ENTRESTO [Concomitant]
     Active Substance: SACUBITRIL\VALSARTAN
     Dosage: UNK

REACTIONS (17)
  - Dyspnoea exertional [Recovered/Resolved]
  - Polyneuropathy [Unknown]
  - Dyspnoea [Recovered/Resolved]
  - Flank pain [Recovered/Resolved]
  - Renal pain [Recovered/Resolved]
  - Fatigue [Recovered/Resolved]
  - Diarrhoea [Recovered/Resolved]
  - Pain in jaw [Recovered/Resolved]
  - Ejection fraction decreased [Recovering/Resolving]
  - Hypertension [Recovered/Resolved]
  - Dyspnoea [Recovered/Resolved]
  - Hypertension [Recovered/Resolved]
  - Ejection fraction decreased [Recovered/Resolved]
  - Paraesthesia [Recovered/Resolved]
  - Ejection fraction decreased [Recovered/Resolved]
  - Dysgeusia [Recovered/Resolved]
  - Sinusitis [Recovered/Resolved]

NARRATIVE: CASE EVENT DATE: 20171030
